FAERS Safety Report 5142590-X (Version None)
Quarter: 2006Q4

REPORT INFORMATION
  Report Type: 
  Country: None (occurrence: None)
  Receive Date: 20061027
  Receipt Date: 20061016
  Transmission Date: 20070319
  Serious: Yes (Hospitalization)
  Sender: FDA-Public Use
  Company Number: 2006AL003152

PATIENT
  Age: 62 Year
  Sex: Female

DRUGS (3)
  1. PROPYLTHIOURACIL [Suspect]
     Indication: HYPERTHYROIDISM
     Dosage: 100 MG;TID;PO
     Route: 048
     Dates: start: 20041011
  2. ORAL CONTRACEPTIVE [Concomitant]
  3. PROPANOLOL LA [Concomitant]

REACTIONS (10)
  - BASEDOW'S DISEASE [None]
  - BLISTER [None]
  - BLOOD THYROID STIMULATING HORMONE DECREASED [None]
  - DISEASE RECURRENCE [None]
  - OEDEMA PERIPHERAL [None]
  - PAIN [None]
  - PURPURA [None]
  - RASH [None]
  - SKIN EXFOLIATION [None]
  - WOUND SECRETION [None]
